FAERS Safety Report 4807555-3 (Version None)
Quarter: 2005Q4

REPORT INFORMATION
  Report Type: 
  Country: None (occurrence: None)
  Receive Date: 20051024
  Receipt Date: 20051013
  Transmission Date: 20060501
  Serious: Yes (Hospitalization)
  Sender: FDA-Public Use
  Company Number: AU-ROCHE-420780

PATIENT
  Age: 39 Year
  Sex: Male
  Weight: 89.5 kg

DRUGS (6)
  1. PEG-INTERFERON ALFA 2A (RO 25-8310) [Suspect]
     Route: 058
     Dates: start: 20050705, end: 20051012
  2. RIBAVIRIN [Suspect]
     Route: 048
     Dates: start: 20050705, end: 20051012
  3. TELMISARTAN [Concomitant]
     Dates: start: 20050605
  4. EFFEXOR [Concomitant]
     Dates: start: 20000615
  5. SANDOMIGRIN [Concomitant]
     Dates: start: 20050605
  6. METHADONE [Concomitant]
     Dates: start: 19970615

REACTIONS (11)
  - ACTIVITIES OF DAILY LIVING IMPAIRED [None]
  - COLD SWEAT [None]
  - DEEP VEIN THROMBOSIS [None]
  - DISORIENTATION [None]
  - DIZZINESS [None]
  - DYSPNOEA [None]
  - HUNGER [None]
  - JOINT INJURY [None]
  - PALLOR [None]
  - PLATELET COUNT DECREASED [None]
  - VOMITING [None]
